FAERS Safety Report 5506846-0 (Version None)
Quarter: 2007Q4

REPORT INFORMATION
  Report Type: 
  Country: None (occurrence: None)
  Receive Date: 20071105
  Receipt Date: 20071022
  Transmission Date: 20080405
  Serious: Yes (Hospitalization)
  Sender: FDA-Public Use
  Company Number: FR-SHR-FR-2007-039639

PATIENT
  Age: 45 Year
  Sex: Male

DRUGS (1)
  1. CAMPATH [Suspect]
     Route: 042
     Dates: start: 20070103, end: 20070801

REACTIONS (2)
  - DYSPNOEA [None]
  - INTERSTITIAL LUNG DISEASE [None]
